FAERS Safety Report 10047963 (Version 1)
Quarter: 2014Q1

REPORT INFORMATION
  Report Type: Spontaneous
  Country: US (occurrence: US)
  Receive Date: 20140331
  Receipt Date: 20140331
  Transmission Date: 20141002
  Serious: No
  Sender: FDA-Public Use
  Company Number: US-BAXTER-2014BAX014463

PATIENT
  Age: 56 Year
  Sex: Female

DRUGS (3)
  1. GAMMAGARD LIQUID [Suspect]
     Indication: IMMUNODEFICIENCY COMMON VARIABLE
     Route: 042
     Dates: start: 2010
  2. GAMMAGARD LIQUID [Suspect]
     Route: 042
  3. GAMMAGARD LIQUID [Suspect]
     Route: 042

REACTIONS (1)
  - Headache [Not Recovered/Not Resolved]
